FAERS Safety Report 10149368 (Version 1)
Quarter: 2014Q2

REPORT INFORMATION
  Report Type: Spontaneous
  Country: US (occurrence: None)
  Receive Date: 20140430
  Receipt Date: 20140430
  Transmission Date: 20141212
  Serious: Yes (Hospitalization)
  Sender: FDA-Public Use
  Company Number: None

PATIENT
  Age: 59 Year
  Sex: Female

DRUGS (12)
  1. DIPHENHYDRAMINE [Suspect]
     Indication: INSOMNIA
     Route: 048
     Dates: start: 20130828, end: 20130829
  2. ALPRAZOLAM [Concomitant]
  3. BUSPIRONE [Concomitant]
  4. LEVOTHYROXINE [Concomitant]
  5. LORAZEPAM [Concomitant]
  6. ESCITALOPRAM [Concomitant]
  7. OMEPRAZOLE [Concomitant]
  8. SIMVASTATIN [Concomitant]
  9. RISEDRONATE [Concomitant]
  10. ESZOPICLONE [Concomitant]
  11. VITAMIN D [Concomitant]
  12. VITAMIN B12 [Concomitant]

REACTIONS (8)
  - Anxiety [None]
  - Vision blurred [None]
  - Tremor [None]
  - Feeling hot [None]
  - Urinary retention [None]
  - Hypoxia [None]
  - Heart rate increased [None]
  - Blood pressure increased [None]
